FAERS Safety Report 24583187 (Version 2)
Quarter: 2025Q1

REPORT INFORMATION
  Report Type: Report from Study
  Country: US (occurrence: US)
  Receive Date: 20241106
  Receipt Date: 20250211
  Transmission Date: 20250408
  Serious: Yes (Other)
  Sender: Unknown Manufacturer
  Company Number: US-MIRUM PHARMACEUTICALS, INC.-US-MIR-24-00759

PATIENT

DRUGS (13)
  1. LIVMARLI [Suspect]
     Active Substance: MARALIXIBAT CHLORIDE
     Indication: Alagille syndrome
     Dosage: INCREASED TO 9.5 MILLIGRAM, QD (WEIGHT ADJUSTMENT)
     Route: 065
     Dates: start: 20241209
  2. LIVMARLI [Suspect]
     Active Substance: MARALIXIBAT CHLORIDE
     Dosage: INCREASED TO 8.55 MILLIGRAM, QD (WEIGH ADJUSTMENT) -0.9 MILLILITER
     Route: 065
     Dates: start: 20231003, end: 20241208
  3. LIVMARLI [Suspect]
     Active Substance: MARALIXIBAT CHLORIDE
     Dosage: 7.6 MILLIGRAM, QD
     Route: 065
     Dates: start: 20230712, end: 20231002
  4. LIVMARLI [Suspect]
     Active Substance: MARALIXIBAT CHLORIDE
     Dosage: 3.8 MILLIGRAM, QD (RESTARTED)
     Route: 065
     Dates: start: 20230605, end: 20230711
  5. LIVMARLI [Suspect]
     Active Substance: MARALIXIBAT CHLORIDE
     Dosage: INCREASED TO 6.65 MILLIGRAM, QD
     Route: 065
     Dates: start: 20220211, end: 20220914
  6. LIVMARLI [Suspect]
     Active Substance: MARALIXIBAT CHLORIDE
     Dosage: ADJUSTED TO 3.3 MILLIGRAM, QD
     Route: 065
     Dates: start: 20220104, end: 20220210
  7. LIVMARLI [Suspect]
     Active Substance: MARALIXIBAT CHLORIDE
     Dosage: 3.6 MILLIGRAM, QD
     Route: 065
     Dates: start: 20211231, end: 20220103
  8. LIVMARLI [Suspect]
     Active Substance: MARALIXIBAT CHLORIDE
     Route: 065
  9. LIVMARLI [Suspect]
     Active Substance: MARALIXIBAT CHLORIDE
     Route: 065
  10. CYPROHEPTADINE [Concomitant]
     Active Substance: CYPROHEPTADINE
     Indication: Product used for unknown indication
     Dosage: 2 MILLIGRAM, TID (MONDAY - FRIDAY)
     Route: 048
  11. VITAMIN D NOS [Concomitant]
     Active Substance: CHOLECALCIFEROL\ERGOCALCIFEROL
     Indication: Product used for unknown indication
     Dosage: 2000 INTERNATIONAL UNIT, QD
     Route: 048
  12. PEDIASURE COMPLETE [ASCORBIC ACID;BIOTIN;CALCIUM;CARBOHYDRATES NOS;CAR [Concomitant]
     Indication: Product used for unknown indication
     Dosage: 1 BOTTLE, BID
     Route: 065
  13. MVI [ASCORBIC ACID;DEXPANTHENOL;ERGOCALCIFEROL;NICOTINAMIDE;PYRIDOXINE [Concomitant]
     Indication: Product used for unknown indication
     Route: 065

REACTIONS (12)
  - Drug-induced liver injury [Unknown]
  - Hepatic fibrosis [Unknown]
  - Cholangitis [Recovered/Resolved]
  - Growth retardation [Not Recovered/Not Resolved]
  - Pulmonary hypertension [Not Recovered/Not Resolved]
  - Coagulopathy [Unknown]
  - COVID-19 [Unknown]
  - Inflammation [Recovered/Resolved]
  - Pruritus [Recovered/Resolved]
  - International normalised ratio increased [Recovered/Resolved]
  - Vitamin K deficiency [Recovered/Resolved]
  - Prescribed underdose [Unknown]

NARRATIVE: CASE EVENT DATE: 20220101
